FAERS Safety Report 7198694-3 (Version None)
Quarter: 2010Q4

REPORT INFORMATION
  Report Type: 
  Country: None (occurrence: None)
  Receive Date: 20101227
  Receipt Date: 20101215
  Transmission Date: 20110411
  Serious: Yes (Hospitalization)
  Sender: FDA-Public Use
  Company Number: JP-ELI_LILLY_AND_COMPANY-JP201012004532

PATIENT
  Age: 82 Year
  Sex: Male

DRUGS (1)
  1. GEMZAR [Suspect]
     Indication: GALLBLADDER CANCER RECURRENT
     Dosage: 1000 MG, OTHER
     Route: 042
     Dates: start: 20101101, end: 20101201

REACTIONS (4)
  - CELL MARKER INCREASED [None]
  - DYSPNOEA [None]
  - INTERSTITIAL LUNG DISEASE [None]
  - MALAISE [None]
